FAERS Safety Report 20235605 (Version 1)
Quarter: 2021Q4

REPORT INFORMATION
  Report Type: Spontaneous
  Country: US (occurrence: US)
  Receive Date: 20211228
  Receipt Date: 20211228
  Transmission Date: 20220304
  Serious: No
  Sender: FDA-Public Use
  Company Number: US-TOLMAR, INC.-21US030060

PATIENT
  Age: 82 Year

DRUGS (1)
  1. ELIGARD [Suspect]
     Active Substance: LEUPROLIDE ACETATE
     Indication: Product used for unknown indication
     Dosage: 45 MILLIGRAM, Q 6 MONTH
     Dates: start: 20210827

REACTIONS (2)
  - Intercepted product preparation error [Unknown]
  - Needle issue [Unknown]

NARRATIVE: CASE EVENT DATE: 20210827
